FAERS Safety Report 9251490 (Version 2)
Quarter: 2013Q2

REPORT INFORMATION
  Report Type: Spontaneous
  Country: US (occurrence: US)
  Receive Date: 20130424
  Receipt Date: 20130515
  Transmission Date: 20140414
  Serious: Yes (Death, Hospitalization)
  Sender: FDA-Public Use
  Company Number: US-JNJFOC-20130411899

PATIENT
  Age: 26 Year
  Sex: Male
  Weight: 63.5 kg

DRUGS (2)
  1. BENADRYL ALLERGY DYE-FREE [Suspect]
     Indication: INTENTIONAL DRUG MISUSE
     Dosage: OVER 50 LIQUID GELS HAD BEEN DOING FOR ABOUT A YEAR
     Route: 042
     Dates: end: 20121116
  2. ADDERALL [Suspect]
     Indication: INTENTIONAL DRUG MISUSE
     Route: 065

REACTIONS (9)
  - Renal failure [Fatal]
  - Urinary tract infection [Fatal]
  - Drug abuse [Unknown]
  - Overdose [Unknown]
  - Incorrect route of drug administration [Unknown]
  - Road traffic accident [Unknown]
  - Sedation [Unknown]
  - Agitation [Unknown]
  - Intentional drug misuse [None]
